FAERS Safety Report 8975731 (Version 2)
Quarter: 2013Q2

REPORT INFORMATION
  Report Type: Report from Study
  Country: CA (occurrence: CA)
  Receive Date: 20121219
  Receipt Date: 20130515
  Transmission Date: 20140414
  Serious: Yes (Hospitalization)
  Sender: FDA-Public Use
  Company Number: CA-ROCHE-1168140

PATIENT
  Age: 76 Year
  Sex: Male
  Weight: 99.8 kg

DRUGS (9)
  1. RITUXAN [Suspect]
     Indication: RHEUMATOID ARTHRITIS
     Route: 042
     Dates: start: 20100416
  2. INSULIN [Concomitant]
  3. BISOPROLOL [Concomitant]
  4. FUROSEMIDE [Concomitant]
  5. SYNTHROID [Concomitant]
  6. APO-PANTOPRAZOLE [Concomitant]
  7. ADVAIR [Concomitant]
  8. ASPIRIN [Concomitant]
  9. FOLIC ACID [Concomitant]

REACTIONS (3)
  - Peripheral vascular disorder [Not Recovered/Not Resolved]
  - Neuropathy peripheral [Not Recovered/Not Resolved]
  - Leg amputation [Recovered/Resolved]
